FAERS Safety Report 6162703-0 (Version None)
Quarter: 2009Q2

REPORT INFORMATION
  Report Type: 
  Country: None (occurrence: None)
  Receive Date: 20090421
  Receipt Date: 20080918
  Transmission Date: 20091009
  Serious: No
  Sender: FDA-Public Use
  Company Number: US-ASTRAZENECA-2006UW13614

PATIENT
  Age: 70 Year
  Sex: Female
  Weight: 55.8 kg

DRUGS (5)
  1. TOPROL-XL [Suspect]
     Indication: HEART RATE ABNORMAL
     Dosage: 1/2 OF A 50 MG TABLET
     Route: 048
     Dates: start: 20010101
  2. TOPROL-XL [Suspect]
     Dosage: WHOLE 25 MG TABLET
     Route: 048
  3. ZOCOR [Concomitant]
  4. AMITRIPTLINE HYDROCHLORIDE TAB [Concomitant]
  5. IBUPROFEN [Concomitant]
     Indication: PAIN

REACTIONS (4)
  - BLOOD PRESSURE FLUCTUATION [None]
  - INSOMNIA [None]
  - MUSCLE SPASMS [None]
  - TACHYCARDIA [None]
